FAERS Safety Report 4837122-7 (Version None)
Quarter: 2005Q4

REPORT INFORMATION
  Report Type: 
  Country: None (occurrence: None)
  Receive Date: 20051122
  Receipt Date: 20051108
  Transmission Date: 20060501
  Serious: Yes (Death)
  Sender: FDA-Public Use
  Company Number: US200511000011

PATIENT
  Sex: Male

DRUGS (2)
  1. CIALIS [Suspect]
  2. VIAGRA                               /SWE/ (SILDENAFIL CITRATE) [Concomitant]

REACTIONS (2)
  - COMPLETED SUICIDE [None]
  - GUN SHOT WOUND [None]
